FAERS Safety Report 4750282-1 (Version None)
Quarter: 2005Q3

REPORT INFORMATION
  Report Type: 
  Country: None (occurrence: None)
  Receive Date: 20050818
  Receipt Date: 20050809
  Transmission Date: 20060218
  Serious: Yes (Hospitalization, Other)
  Sender: FDA-Public Use
  Company Number: HQWYE133802JUN05

PATIENT
  Age: 41 Year
  Sex: Female

DRUGS (10)
  1. NOVANTRONE [Suspect]
     Indication: MULTIPLE SCLEROSIS
     Dosage: 25 MG/M2 EVERY 3 MONTHS
     Dates: start: 20040408, end: 20050208
  2. EFFEXOR [Suspect]
  3. NEURONTIN [Concomitant]
  4. PROVIGIL [Concomitant]
  5. INDERAL [Concomitant]
  6. CLONAZEPAM [Concomitant]
  7. ENALAPRIL MALEATE [Concomitant]
  8. AMBIEN [Concomitant]
  9. IMITREX [Concomitant]
  10. TRILEPTAL [Concomitant]

REACTIONS (1)
  - IDIOPATHIC THROMBOCYTOPENIC PURPURA [None]
